FAERS Safety Report 6171640-7 (Version None)
Quarter: 2009Q2

REPORT INFORMATION
  Report Type: 
  Country: None (occurrence: None)
  Receive Date: 20090428
  Receipt Date: 20090428
  Transmission Date: 20091009
  Serious: No
  Sender: FDA-Public Use
  Company Number: None

PATIENT
  Sex: Female
  Weight: 49.55 kg

DRUGS (10)
  1. ARICEPT [Suspect]
     Dosage: 5 MG TABLET 5 MG DAILY ORAL
     Route: 048
     Dates: start: 20090414, end: 20090427
  2. CALCIUM + D (600 MG ELEM CA) (CALCIUM CARBONATE 1500 MG (600 MG ELEM C [Concomitant]
  3. ESTRING [Concomitant]
  4. LEVOXYL [Concomitant]
  5. LISINOPRIL [Concomitant]
  6. NYSTATIN [Concomitant]
  7. PRILOSEC [Concomitant]
  8. SEROQUEL [Concomitant]
  9. STALEVO 100 [Concomitant]
  10. WELLBUTRIN [Concomitant]

REACTIONS (1)
  - DIARRHOEA [None]
